FAERS Safety Report 11138138 (Version 1)
Quarter: 2015Q2

REPORT INFORMATION
  Report Type: Report from Study
  Country: US (occurrence: US)
  Receive Date: 20150526
  Receipt Date: 20150526
  Transmission Date: 20150821
  Serious: Yes (Other)
  Sender: FDA-Public Use
  Company Number: US-SA-2014SA121362

PATIENT
  Age: 34 Year
  Sex: Female
  Weight: 48.9 kg

DRUGS (2)
  1. CYMBALTA [Concomitant]
     Active Substance: DULOXETINE HYDROCHLORIDE
     Indication: NEURALGIA
  2. AUBAGIO [Suspect]
     Active Substance: TERIFLUNOMIDE
     Indication: MULTIPLE SCLEROSIS
     Route: 048
     Dates: start: 20140820

REACTIONS (10)
  - Balance disorder [Unknown]
  - Abdominal pain [Unknown]
  - Dysphagia [Unknown]
  - Gait disturbance [Unknown]
  - Blood potassium decreased [Unknown]
  - Inner ear disorder [Unknown]
  - Fatigue [Unknown]
  - Urinary tract infection [Unknown]
  - Dizziness [Unknown]
  - Abdominal pain lower [Unknown]

NARRATIVE: CASE EVENT DATE: 2014
